FAERS Safety Report 6803536-9 (Version None)
Quarter: 2010Q2

REPORT INFORMATION
  Report Type: 
  Country: None (occurrence: None)
  Receive Date: 20100628
  Receipt Date: 20100623
  Transmission Date: 20101027
  Serious: Yes (Life-Threatening, Disabling)
  Sender: FDA-Public Use
  Company Number: JP-JNJFOC-20100605531

PATIENT
  Sex: Male

DRUGS (1)
  1. RISPERDAL [Suspect]
     Indication: RESTLESSNESS
     Route: 048

REACTIONS (3)
  - CARDIAC ARREST [None]
  - OFF LABEL USE [None]
  - SINUS BRADYCARDIA [None]
